FAERS Safety Report 11873073 (Version 1)
Quarter: 2015Q4

REPORT INFORMATION
  Report Type: Spontaneous
  Country: US (occurrence: US)
  Receive Date: 20151228
  Receipt Date: 20151228
  Transmission Date: 20160305
  Serious: Yes (Other)
  Sender: FDA-Public Use
  Company Number: US-AMNEAL PHARMACEUTICALS-2015AMN00182

PATIENT
  Age: 60 Year
  Sex: Female
  Weight: 77.98 kg

DRUGS (8)
  1. GABAPENTIN. [Suspect]
     Active Substance: GABAPENTIN
     Dosage: 600 MG, 3X/DAY
     Dates: start: 201508, end: 20151013
  2. NOVOLOG [Concomitant]
     Active Substance: INSULIN ASPART
  3. VICODIN [Concomitant]
     Active Substance: ACETAMINOPHEN\HYDROCODONE BITARTRATE
     Dosage: 1 TABLETS, AS NEEDED
  4. SYNTHROID [Concomitant]
     Active Substance: LEVOTHYROXINE SODIUM
     Dosage: 112 MCG, 1X/DAY
  5. VITAMIN D [Concomitant]
     Active Substance: CHOLECALCIFEROL
     Dosage: 50000 IU, 1X/WEEK
  6. LEVEMIR [Concomitant]
     Active Substance: INSULIN DETEMIR
     Dosage: 28 U, 1X/DAY
     Route: 058
  7. GABAPENTIN. [Suspect]
     Active Substance: GABAPENTIN
     Indication: DIABETIC NEUROPATHY
     Dosage: 900 MG, 3X/DAY
     Dates: start: 201501, end: 201508
  8. BACLOFEN. [Concomitant]
     Active Substance: BACLOFEN
     Dosage: 5 MG, UP TO 3X/DAY

REACTIONS (9)
  - Paraesthesia [Recovering/Resolving]
  - Musculoskeletal disorder [Recovering/Resolving]
  - Crying [Recovering/Resolving]
  - Muscle spasms [Not Recovered/Not Resolved]
  - Dysgeusia [Recovered/Resolved]
  - Intervertebral disc protrusion [Not Recovered/Not Resolved]
  - Pain [Recovered/Resolved]
  - Blood pressure increased [Unknown]
  - Drug effect incomplete [Not Recovered/Not Resolved]

NARRATIVE: CASE EVENT DATE: 2015
